FAERS Safety Report 19759691 (Version 1)
Quarter: 2021Q3

REPORT INFORMATION
  Report Type: Spontaneous
  Country: CN (occurrence: CN)
  Receive Date: 20210830
  Receipt Date: 20210830
  Transmission Date: 20211014
  Serious: Yes (Hospitalization)
  Sender: FDA-Public Use
  Company Number: ALC2021CN004866

PATIENT
  Age: 52 Year
  Sex: Female
  Weight: 50 kg

DRUGS (2)
  1. IODIXANOL. [Suspect]
     Active Substance: IODIXANOL
     Indication: ANGIOGRAM
     Dosage: 100 ML, QD
     Route: 065
     Dates: start: 20210811, end: 20210811
  2. FLUORESCITE [Suspect]
     Active Substance: FLUORESCEIN SODIUM
     Indication: FUNDOSCOPY
     Dosage: 5 ML, QD
     Route: 042
     Dates: start: 20210809, end: 20210809

REACTIONS (2)
  - Face oedema [Recovered/Resolved]
  - Pruritus [Recovered/Resolved]

NARRATIVE: CASE EVENT DATE: 20210812
